FAERS Safety Report 16889332 (Version 1)
Quarter: 2019Q4

REPORT INFORMATION
  Report Type: Spontaneous
  Country: US (occurrence: US)
  Receive Date: 20191007
  Receipt Date: 20191007
  Transmission Date: 20200122
  Serious: No
  Sender: FDA-Public Use
  Company Number: US-AMERIGEN PHARMACEUTICALS, INC-2019AMG000035

PATIENT

DRUGS (1)
  1. MIGLUSTAT CAPSULE, 100MG [Suspect]
     Active Substance: MIGLUSTAT
     Indication: TAY-SACHS DISEASE
     Dosage: 100 MG, TID
     Route: 048
     Dates: start: 2019, end: 201903

REACTIONS (5)
  - Product substitution issue [Unknown]
  - Gastrointestinal disorder [Recovered/Resolved]
  - Product use in unapproved indication [Unknown]
  - Diarrhoea [Recovered/Resolved]
  - Dizziness [Recovered/Resolved]
